FAERS Safety Report 9437122 (Version 3)
Quarter: 2013Q3

REPORT INFORMATION
  Report Type: Spontaneous
  Country: US (occurrence: US)
  Receive Date: 20130802
  Receipt Date: 20130924
  Transmission Date: 20140515
  Serious: Yes (Other)
  Sender: FDA-Public Use
  Company Number: US-JNJFOC-20130715331

PATIENT
  Age: 55 Year
  Sex: Female
  Weight: 61.24 kg

DRUGS (4)
  1. STELARA [Suspect]
     Indication: PSORIASIS
     Route: 058
     Dates: start: 20130807
  2. STELARA [Suspect]
     Indication: PSORIASIS
     Route: 058
     Dates: start: 20130706
  3. SEROQUEL [Concomitant]
     Indication: MENTAL DISORDER
     Route: 065
  4. MIRTAZAPINE [Concomitant]
     Indication: MENTAL DISORDER
     Route: 065

REACTIONS (2)
  - Pustular psoriasis [Recovering/Resolving]
  - Erythrodermic psoriasis [Not Recovered/Not Resolved]
